FAERS Safety Report 5902024-1 (Version None)
Quarter: 2008Q3

REPORT INFORMATION
  Report Type: 
  Country: None (occurrence: None)
  Receive Date: 20080909
  Receipt Date: 20080401
  Transmission Date: 20090109
  Serious: Yes (Other)
  Sender: FDA-Public Use
  Company Number: US-WYE-H03397708

PATIENT
  Age: 38 Year
  Sex: Male
  Weight: 88.53 kg

DRUGS (1)
  1. ADVIL [Suspect]
     Indication: PAIN
     Dosage: 2 CAPSULES 1X PER 1 DAY, ORAL
     Route: 048
     Dates: start: 20080330, end: 20080330

REACTIONS (1)
  - SWEAT DISCOLOURATION [None]
